FAERS Safety Report 25772843 (Version 1)
Quarter: 2025Q3

REPORT INFORMATION
  Report Type: Report from Study
  Country: US (occurrence: US)
  Receive Date: 20250908
  Receipt Date: 20250908
  Transmission Date: 20251021
  Serious: Yes (Other)
  Sender: ALEXION PHARMACEUTICALS
  Company Number: US-AstraZeneca-CH-00943553A

PATIENT
  Sex: Male
  Weight: 80.598 kg

DRUGS (5)
  1. ACALABRUTINIB [Suspect]
     Active Substance: ACALABRUTINIB
     Indication: B-cell lymphoma
     Dosage: 100 MILLIGRAM, BID
     Dates: start: 202404
  2. ALLOPURINOL [Concomitant]
     Active Substance: ALLOPURINOL
     Route: 065
  3. VITAMINS [Concomitant]
     Active Substance: VITAMINS
     Route: 065
  4. ONDANSETRON HYDROCHLORIDE [Concomitant]
     Active Substance: ONDANSETRON HYDROCHLORIDE
     Route: 065
  5. ZITHROMAX [Concomitant]
     Active Substance: AZITHROMYCIN DIHYDRATE
     Route: 065

REACTIONS (1)
  - Malignant neoplasm progression [Not Recovered/Not Resolved]
